FAERS Safety Report 9651452 (Version 1)
Quarter: 2013Q4

REPORT INFORMATION
  Report Type: Spontaneous
  Country: CL (occurrence: CL)
  Receive Date: 20131029
  Receipt Date: 20131029
  Transmission Date: 20140711
  Serious: Yes (Other)
  Sender: FDA-Public Use
  Company Number: CL-AMGEN-CHLSP2013075181

PATIENT
  Age: 38 Year
  Sex: Male

DRUGS (1)
  1. NEUPOGEN [Suspect]
     Indication: NEUTROPENIA
     Dosage: 30 MIU (30 MIU, 1 IN 1 D) DAILY
     Route: 058
     Dates: start: 20131008, end: 20131010

REACTIONS (2)
  - Platelet count decreased [Recovering/Resolving]
  - Musculoskeletal pain [Recovered/Resolved]
